FAERS Safety Report 10206061 (Version 1)
Quarter: 2014Q2

REPORT INFORMATION
  Report Type: Spontaneous
  Country: US (occurrence: US)
  Receive Date: 20140530
  Receipt Date: 20140530
  Transmission Date: 20141212
  Serious: No
  Sender: FDA-Public Use
  Company Number: US-PFIZER INC-2014146717

PATIENT
  Age: 5 Year
  Sex: Male

DRUGS (1)
  1. XALKORI [Suspect]
     Indication: NEUROBLASTOMA
     Dosage: 200 MG, UNK
     Dates: start: 20140424

REACTIONS (2)
  - Off label use [Unknown]
  - Pharyngitis streptococcal [Unknown]
